FAERS Safety Report 25594695 (Version 2)
Quarter: 2025Q3

REPORT INFORMATION
  Report Type: Report from Study
  Country: CA (occurrence: CA)
  Receive Date: 20250723
  Receipt Date: 20250813
  Transmission Date: 20251021
  Serious: Yes (Hospitalization)
  Sender: ALEXION PHARMACEUTICALS
  Company Number: CA-AstraZeneca-CH-00882479A

PATIENT
  Sex: Female

DRUGS (5)
  1. TEZEPELUMAB [Suspect]
     Active Substance: TEZEPELUMAB
     Indication: Asthma
  2. TEZEPELUMAB [Suspect]
     Active Substance: TEZEPELUMAB
  3. Jamp ipratropium hfa [Concomitant]
     Route: 065
  4. VENTOLIN [Concomitant]
     Active Substance: ALBUTEROL SULFATE
     Route: 065
  5. BREZTRI [Concomitant]
     Active Substance: BUDESONIDE\FORMOTEROL\GLYCOPYRROLATE
     Route: 065

REACTIONS (5)
  - Spinal fracture [Unknown]
  - Pain [Unknown]
  - Dyspnoea [Unknown]
  - Unresponsive to stimuli [Unknown]
  - Needle issue [Unknown]
